FAERS Safety Report 17180584 (Version 11)
Quarter: 2021Q4

REPORT INFORMATION
  Report Type: Report from Study
  Country: ES (occurrence: None)
  Receive Date: 20191220
  Receipt Date: 20211110
  Transmission Date: 20220303
  Serious: Yes (Hospitalization)
  Sender: FDA-Public Use
  Company Number: ES-ROCHE-2499640

PATIENT
  Age: 75 Year
  Sex: Female
  Weight: 79.8 kg

DRUGS (14)
  1. COBIMETINIB [Suspect]
     Active Substance: COBIMETINIB
     Indication: Ovarian cancer
     Dosage: DATE OF MOST RECENT DOSE (60 MG) OF COBIMETINIB PRIOR TO SAE ONSET: 09/DEC/2019
     Route: 048
     Dates: start: 20191202
  2. COBIMETINIB [Suspect]
     Active Substance: COBIMETINIB
     Dosage: MOST RECENT DOSE OF COBIMETINIB WAS 40 MG.
     Route: 048
     Dates: start: 20191230
  3. ATEZOLIZUMAB [Suspect]
     Active Substance: ATEZOLIZUMAB
     Indication: Ovarian cancer
     Dosage: DATE OF MOST RECENT DOSE OF ATEZOLIZUMAB (840 MG) PRIOR TO SAE ONSET:02/DEC/2019
     Route: 041
     Dates: start: 20191202
  4. NIRAPARIB [Suspect]
     Active Substance: NIRAPARIB
     Indication: Ovarian cancer
     Dosage: DATE OF MOST RECENT DOSE OF NIRAPARIB (200 MG) PRIOR TO SAE ONSET: 08/DEC/2019
     Route: 048
     Dates: start: 20191202
  5. NIRAPARIB [Suspect]
     Active Substance: NIRAPARIB
     Dosage: MOST RECENT DOSE OF NIRAPARIB WAS 100 MG.
     Route: 048
     Dates: start: 20191230
  6. ATOLME PLUS [Concomitant]
     Indication: Hypertension
     Route: 048
     Dates: start: 201908, end: 20200204
  7. LEVOTHYROXINE SODIUM [Concomitant]
     Active Substance: LEVOTHYROXINE SODIUM
     Indication: Hypothyroidism
     Route: 048
     Dates: start: 2009
  8. ALLOPURINOL [Concomitant]
     Active Substance: ALLOPURINOL
     Indication: Hyperuricaemia
     Route: 048
     Dates: start: 201909
  9. CYANOCOBALAMIN\PYRIDOXINE\THIAMINE [Concomitant]
     Active Substance: CYANOCOBALAMIN\PYRIDOXINE\THIAMINE
     Route: 048
     Dates: start: 201901
  10. MAGNOGENE [Concomitant]
     Route: 048
     Dates: start: 201904
  11. OMEPRAZOLE [Concomitant]
     Active Substance: OMEPRAZOLE
     Indication: Prophylaxis
     Route: 042
     Dates: start: 20191213
  12. DOXYCYCLINE [Concomitant]
     Active Substance: DOXYCYCLINE
     Indication: Dermatitis acneiform
     Route: 048
     Dates: start: 20191213, end: 20191223
  13. DIPRODERM (SPAIN) [Concomitant]
     Indication: Dermatitis acneiform
     Route: 061
     Dates: start: 20191213, end: 20191219
  14. PRIMPERAN [Concomitant]
     Active Substance: METOCLOPRAMIDE HYDROCHLORIDE
     Indication: Vomiting
     Route: 042
     Dates: start: 20191212

REACTIONS (1)
  - Gastrointestinal toxicity [Recovered/Resolved]

NARRATIVE: CASE EVENT DATE: 20191209
